FAERS Safety Report 7176347-5 (Version None)
Quarter: 2010Q4

REPORT INFORMATION
  Report Type: 
  Country: None (occurrence: None)
  Receive Date: 20101220
  Receipt Date: 20101214
  Transmission Date: 20110411
  Serious: No
  Sender: FDA-Public Use
  Company Number: US-PFIZER INC-2010172111

PATIENT
  Sex: Female
  Weight: 43.084 kg

DRUGS (2)
  1. ZITHROMAX [Suspect]
     Indication: RESPIRATORY TRACT CONGESTION
     Dosage: 2 DF, 1X/DAY
     Route: 048
     Dates: start: 20101017, end: 20101021
  2. DIPHTHERIA AND TETANUS VACCINE [Concomitant]
     Dosage: UNK
     Dates: start: 20101017

REACTIONS (1)
  - HYPERACUSIS [None]
